FAERS Safety Report 25562047 (Version 2)
Quarter: 2025Q4

REPORT INFORMATION
  Report Type: Spontaneous
  Country: US (occurrence: US)
  Receive Date: 20250716
  Receipt Date: 20251027
  Transmission Date: 20260117
  Serious: No
  Sender: SANOFI AVENTIS
  Company Number: US-SA-2025SA198422

PATIENT
  Age: 58 Year
  Sex: Female

DRUGS (2)
  1. DUPIXENT [Suspect]
     Active Substance: DUPILUMAB
     Indication: Eczema
     Dosage: 600 MG, 1X
     Route: 058
     Dates: start: 20250416, end: 20250416
  2. DUPIXENT [Suspect]
     Active Substance: DUPILUMAB
     Dosage: 300 MG, QOW
     Route: 058
     Dates: start: 20250430

REACTIONS (13)
  - Skin discolouration [Unknown]
  - Pain [Unknown]
  - Muscle spasms [Unknown]
  - Vision blurred [Unknown]
  - Headache [Unknown]
  - Eczema [Unknown]
  - Skin ulcer [Unknown]
  - Skin irritation [Unknown]
  - Injection site swelling [Unknown]
  - Injection site pain [Unknown]
  - Rash [Unknown]
  - Rash macular [Unknown]
  - Condition aggravated [Unknown]

NARRATIVE: CASE EVENT DATE: 20250101
